FAERS Safety Report 5711075-1 (Version None)
Quarter: 2008Q2

REPORT INFORMATION
  Report Type: 
  Country: None (occurrence: None)
  Receive Date: 20080421
  Receipt Date: 20080407
  Transmission Date: 20081010
  Serious: Yes (Hospitalization, Other)
  Sender: FDA-Public Use
  Company Number: AR-NOVOPROD-273407

PATIENT
  Sex: Female
  Weight: 53.5 kg

DRUGS (6)
  1. LEVEMIR [Suspect]
     Indication: DRUG USE FOR UNKNOWN INDICATION
     Dosage: 49 IU, QD
     Route: 058
     Dates: start: 20060101
  2. FOLIC ACID [Concomitant]
     Dosage: 5 MG, QD
     Route: 048
  3. PROGESTERONE [Concomitant]
     Dosage: 300 UNK, QD
  4. FERROUS FUMARATE [Concomitant]
     Dosage: 330 MG, QD
     Dates: start: 20070101
  5. INSULIN LISPRO [Concomitant]
     Dosage: 5 U, DAY
     Route: 058
  6. ANTIEMETICS AND ANTINAUSEANTS [Concomitant]
     Dosage: 30 MG, UNK
     Dates: start: 20070101

REACTIONS (1)
  - PREMATURE RUPTURE OF MEMBRANES [None]
